FAERS Safety Report 19264749 (Version 1)
Quarter: 2021Q2

REPORT INFORMATION
  Report Type: Spontaneous
  Country: US (occurrence: US)
  Receive Date: 20210517
  Receipt Date: 20210517
  Transmission Date: 20210717
  Serious: No
  Sender: FDA-Public Use
  Company Number: US-TAKEDA-2021TUS030177

PATIENT
  Sex: Female
  Weight: 55 kg

DRUGS (1)
  1. VELCADE [Suspect]
     Active Substance: BORTEZOMIB
     Indication: COLD AGGLUTININS
     Dosage: UNK
     Route: 058
     Dates: start: 20210511

REACTIONS (2)
  - Off label use [Unknown]
  - No adverse event [Unknown]
